FAERS Safety Report 19255566 (Version 1)
Quarter: 2021Q2

REPORT INFORMATION
  Report Type: Spontaneous
  Country: US (occurrence: US)
  Receive Date: 20210513
  Receipt Date: 20210513
  Transmission Date: 20210717
  Serious: Yes (Death, Hospitalization)
  Sender: FDA-Public Use
  Company Number: US-BAYER-2021-138635

PATIENT
  Age: 35 Year
  Sex: Female

DRUGS (1)
  1. GADOBUTROL. [Suspect]
     Active Substance: GADOBUTROL
     Indication: MAGNETIC RESONANCE IMAGING HEAD
     Dosage: 8 ML, ONCE

REACTIONS (14)
  - Disseminated intravascular coagulation [Fatal]
  - Metabolic acidosis [Fatal]
  - Cardiac arrest [Fatal]
  - Dyspnoea [Fatal]
  - Hyperhidrosis [Fatal]
  - Hypotension [Fatal]
  - Contrast media allergy [Fatal]
  - Hypoxia [Fatal]
  - Oxygen saturation decreased [Fatal]
  - Chest discomfort [Fatal]
  - Renal failure [Fatal]
  - Diarrhoea [Fatal]
  - Nausea [Fatal]
  - Vomiting [Fatal]
